FAERS Safety Report 7769082-3 (Version None)
Quarter: 2011Q3

REPORT INFORMATION
  Report Type: 
  Country: None (occurrence: None)
  Receive Date: 20110922
  Receipt Date: 20100207
  Transmission Date: 20111222
  Serious: No
  Sender: FDA-Public Use
  Company Number: US-ASTRAZENECA-2008UW18969

PATIENT
  Age: 45 Year
  Sex: Female
  Weight: 147.4 kg

DRUGS (22)
  1. SEROQUEL [Suspect]
     Dosage: 100 TO 300 MG
     Route: 048
     Dates: start: 20080101
  2. VIOXX [Concomitant]
     Dates: start: 20030410
  3. COZAAR [Concomitant]
     Dosage: 50 MG-100 MG
     Dates: start: 20030221
  4. HYDROCODONE BITARTRATE AND ACETAMINOPHEN [Concomitant]
     Dosage: 5/500
     Dates: start: 20030505
  5. GEODON [Concomitant]
     Dates: start: 20080101
  6. CELEXA [Concomitant]
     Dosage: 20 TO 40 MG
     Dates: start: 20030401, end: 20041001
  7. FUROSEMIDE [Concomitant]
     Dosage: 20 MG-40 MG
     Dates: start: 20030309
  8. DOXAZOSIN MESILATE [Concomitant]
     Dates: start: 20030820
  9. CITALOPRAM HYDROBROMIDE [Concomitant]
     Dosage: 20-40 MG
     Dates: start: 20061201
  10. TRAZODONE HYDROCHLORIDE [Concomitant]
     Dates: start: 20080101
  11. CLONAZEPAM [Concomitant]
     Dosage: 0.5 MG TO 1 MG
     Dates: start: 20030901, end: 20041201
  12. WELLBUTRIN [Concomitant]
     Dosage: 100 TO 150 MG
     Dates: start: 20031201, end: 20050301
  13. SEROQUEL [Suspect]
     Indication: DEPRESSION
     Dosage: 100 TO 300 MG
     Route: 048
     Dates: start: 20030901, end: 20070101
  14. SEROQUEL [Suspect]
     Indication: BIPOLAR DISORDER
     Dosage: 100 TO 300 MG
     Route: 048
     Dates: start: 20030901, end: 20070101
  15. ALTACE [Concomitant]
     Dates: start: 20040528
  16. LORTAB [Concomitant]
     Dosage: 10/500 MG 1 TAB PO QID
     Route: 048
     Dates: start: 20040528
  17. LITHIUM CARBONATE [Concomitant]
     Dates: start: 20080101
  18. LOTREL [Concomitant]
     Dosage: 2.5/10MG 1 TAB QD
     Route: 048
     Dates: start: 20040528
  19. SEROQUEL [Suspect]
     Dosage: 100 TO 300 MG
     Route: 048
     Dates: start: 20080101
  20. NORVASC [Concomitant]
     Dates: start: 20030410
  21. PREVACID [Concomitant]
     Dates: start: 20030107
  22. DIOVAN [Concomitant]
     Route: 048
     Dates: start: 20040528

REACTIONS (6)
  - HYPERTENSION [None]
  - INTERVERTEBRAL DISC PROTRUSION [None]
  - TYPE 2 DIABETES MELLITUS [None]
  - HYPERGLYCAEMIA [None]
  - ARTHROPATHY [None]
  - GASTROINTESTINAL DISORDER [None]
